FAERS Safety Report 12635580 (Version 1)
Quarter: 2016Q3

REPORT INFORMATION
  Report Type: Spontaneous
  Country: US (occurrence: US)
  Receive Date: 20160809
  Receipt Date: 20160809
  Transmission Date: 20161109
  Serious: No
  Sender: FDA-Public Use
  Company Number: US-TARO-2015TAR00720

PATIENT
  Age: 60 Year
  Sex: Male
  Weight: 86.17 kg

DRUGS (7)
  1. ALLOPURINOL. [Concomitant]
     Active Substance: ALLOPURINOL
     Dosage: 100 MG, 1X/DAY
  2. TERBINAFINE HCL CREAM 1% (JOCK ITCH) [Suspect]
     Active Substance: TERBINAFINE HYDROCHLORIDE
     Dosage: PEA-SIZED AMOUNT APPLIED TO SCROTUM, 2X/DAY
     Route: 061
     Dates: start: 20150731
  3. LOSARATAN POTASSIUM [Concomitant]
     Dosage: 25 MG, 1X/DAY
  4. TERBINAFINE HCL CREAM 1% (JOCK ITCH) [Suspect]
     Active Substance: TERBINAFINE HYDROCHLORIDE
     Indication: TINEA CRURIS
     Dosage: PEA-SIZED AMOUNT TOPICALLY TO THE SCROTUM, 1X/DAY
     Route: 061
     Dates: start: 201507, end: 20150730
  5. RISPERIDONE. [Concomitant]
     Active Substance: RISPERIDONE
     Dosage: 3 MG, 1X/DAY
  6. ALPRAZOLAM. [Concomitant]
     Active Substance: ALPRAZOLAM
     Dosage: 1 MG, 1X/DAY
  7. GLIMEPIRIDE. [Concomitant]
     Active Substance: GLIMEPIRIDE
     Dosage: 1 MG, 1X/DAY

REACTIONS (1)
  - Drug ineffective [Not Recovered/Not Resolved]

NARRATIVE: CASE EVENT DATE: 201507
